FAERS Safety Report 23678732 (Version 1)
Quarter: 2024Q1

REPORT INFORMATION
  Report Type: Spontaneous
  Country: US (occurrence: US)
  Receive Date: 20240327
  Receipt Date: 20240327
  Transmission Date: 20240410
  Serious: Yes (Other)
  Sender: FDA-Public Use
  Company Number: US-GLAXOSMITHKLINE-US2024AMR034609

PATIENT

DRUGS (2)
  1. BUPROPION [Suspect]
     Active Substance: BUPROPION
     Indication: Product used for unknown indication
     Dosage: UNK
  2. VALTREX [Suspect]
     Active Substance: VALACYCLOVIR HYDROCHLORIDE
     Indication: Product used for unknown indication
     Dosage: UNK

REACTIONS (14)
  - Endometrial cancer [Unknown]
  - Autoimmune thyroiditis [Unknown]
  - Uterine enlargement [Unknown]
  - Weight increased [Unknown]
  - Palpitations [Unknown]
  - Tremor [Unknown]
  - Pain of skin [Unknown]
  - Blood glucose increased [Unknown]
  - Carbon dioxide increased [Unknown]
  - Alopecia [Unknown]
  - Bone pain [Unknown]
  - Somnolence [Unknown]
  - Nausea [Unknown]
  - Constipation [Unknown]

NARRATIVE: CASE EVENT DATE: 20230601
